FAERS Safety Report 14704423 (Version 1)
Quarter: 2018Q2

REPORT INFORMATION
  Report Type: Spontaneous
  Country: US (occurrence: US)
  Receive Date: 20180402
  Receipt Date: 20180402
  Transmission Date: 20180711
  Serious: No
  Sender: FDA-Public Use
  Company Number: US-ELI_LILLY_AND_COMPANY-US201803011717

PATIENT
  Sex: Male

DRUGS (1)
  1. HUMATROPE [Suspect]
     Active Substance: SOMATROPIN
     Indication: TURNER^S SYNDROME
     Dosage: 0.3 MG, DAILY
     Route: 058
     Dates: start: 201712

REACTIONS (3)
  - Rash [Recovered/Resolved]
  - Insomnia [Recovered/Resolved]
  - Migraine [Recovered/Resolved]
